FAERS Safety Report 16852477 (Version 1)
Quarter: 2019Q3

REPORT INFORMATION
  Report Type: Spontaneous
  Country: US (occurrence: US)
  Receive Date: 20190925
  Receipt Date: 20190925
  Transmission Date: 20191005
  Serious: Yes (Hospitalization)
  Sender: FDA-Public Use
  Company Number: US-JNJFOC-20190929519

PATIENT
  Age: 59 Year
  Sex: Female

DRUGS (2)
  1. INVOKANA [Suspect]
     Active Substance: CANAGLIFLOZIN
     Indication: TYPE 2 DIABETES MELLITUS
     Route: 048
  2. METFORMIN [Suspect]
     Active Substance: METFORMIN HYDROCHLORIDE
     Indication: TYPE 2 DIABETES MELLITUS
     Route: 048

REACTIONS (6)
  - Osteomyelitis [Recovering/Resolving]
  - Weight decreased [Unknown]
  - Septic shock [Recovered/Resolved]
  - Acute kidney injury [Recovered/Resolved]
  - Diabetic foot infection [Recovering/Resolving]
  - Leg amputation [Unknown]

NARRATIVE: CASE EVENT DATE: 201509
